FAERS Safety Report 15951919 (Version 1)
Quarter: 2019Q1

REPORT INFORMATION
  Report Type: Spontaneous
  Country: CH (occurrence: CH)
  Receive Date: 20190212
  Receipt Date: 20190212
  Transmission Date: 20190417
  Serious: Yes (Other)
  Sender: FDA-Public Use
  Company Number: CH-PFIZER INC-2019057456

PATIENT
  Age: 82 Year
  Sex: Male

DRUGS (23)
  1. ATORVASTATIN CALCIUM. [Interacting]
     Active Substance: ATORVASTATIN CALCIUM
     Dosage: 40 MG, 1X/DAY
     Route: 048
     Dates: end: 20181227
  2. ONDANSETRON [Concomitant]
     Active Substance: ONDANSETRON
     Dosage: AS NECESSARY (IN RESERVE)
     Dates: start: 20190108
  3. FRESUBIN [CARBOHYDRATES NOS;FATTY ACIDS NOS;MINERALS NOS;PROTEINS NOS; [Concomitant]
     Dosage: UNK
     Dates: start: 20190111
  4. ATORVASTATIN CALCIUM. [Interacting]
     Active Substance: ATORVASTATIN CALCIUM
     Dosage: 20 MG, 1X/DAY
     Route: 048
     Dates: start: 20181227
  5. LAXOBERON [Concomitant]
     Active Substance: SODIUM PICOSULFATE
     Dosage: AS NECESSARY (IN RESERVE)
     Dates: start: 20190108
  6. DIFLUCAN [Suspect]
     Active Substance: FLUCONAZOLE
     Dosage: 100 MG, 1X/DAY
     Route: 048
     Dates: start: 20181227, end: 20190102
  7. DAFALGAN [Suspect]
     Active Substance: ACETAMINOPHEN
     Dosage: 14 G, UNK IN TOTAL
     Route: 048
     Dates: start: 20190105, end: 20190113
  8. LUVIT D3 [Concomitant]
     Active Substance: CHOLECALCIFEROL
     Dosage: UNK
     Dates: start: 20181225
  9. CIRCADIN [Concomitant]
     Active Substance: MELATONIN
     Dates: start: 20181226, end: 20181229
  10. XANAX [Concomitant]
     Active Substance: ALPRAZOLAM
     Dosage: UNK
     Dates: start: 20190111
  11. MORPHINE HCL [Concomitant]
     Active Substance: MORPHINE HYDROCHLORIDE
     Dosage: UNK
     Dates: start: 20190110
  12. SERTRALINE [Concomitant]
     Active Substance: SERTRALINE HYDROCHLORIDE
     Dosage: UNK
     Dates: start: 20190112
  13. FLECTOR EP [Concomitant]
     Active Substance: DICLOFENAC EPOLAMINE
     Dosage: AS NECESSARY (IN RESERVE)
     Dates: start: 20181228
  14. ZOLPIDEM [Concomitant]
     Active Substance: ZOLPIDEM\ZOLPIDEM TARTRATE
     Dosage: AS NECESSARY
     Dates: start: 20190101, end: 20190111
  15. AMLODIPINE [Concomitant]
     Active Substance: AMLODIPINE BESYLATE
     Dosage: UNK
  16. DAFALGAN [Suspect]
     Active Substance: ACETAMINOPHEN
     Dosage: 1 GR 3X/D MAX IN RESERVE
     Route: 048
     Dates: start: 20190105, end: 20190114
  17. ASPIRIN CARDIO [Concomitant]
     Active Substance: ASPIRIN
     Dosage: UNK
     Dates: start: 20181226
  18. JEVITY [ELECTROLYTES NOS;FATTY ACIDS NOS;GLYCINE MAX SEED OIL;MINERALS [Concomitant]
     Dates: start: 20190103, end: 20190110
  19. VITARUBIN [CYANOCOBALAMIN] [Concomitant]
     Dosage: UNK
     Dates: start: 20190104
  20. COVERSUM N [Concomitant]
     Active Substance: PERINDOPRIL
     Dosage: UNK
     Dates: start: 20181122
  21. DAFALGAN [Suspect]
     Active Substance: ACETAMINOPHEN
     Dosage: 1 G, 3X/DAY
     Route: 048
     Dates: start: 20181228, end: 20190103
  22. FORTALIS BALSAM [Concomitant]
     Dosage: AS NECESSARY (IN RESERVE)
     Dates: start: 20181226
  23. MYCOSTATINE [Concomitant]
     Active Substance: NYSTATIN
     Dates: start: 20181225, end: 20190111

REACTIONS (2)
  - Drug interaction [Recovering/Resolving]
  - Cholestatic liver injury [Recovering/Resolving]

NARRATIVE: CASE EVENT DATE: 20181228
